FAERS Safety Report 14529969 (Version 2)
Quarter: 2018Q3

REPORT INFORMATION
  Report Type: Spontaneous
  Country: US (occurrence: US)
  Receive Date: 20180214
  Receipt Date: 20180920
  Transmission Date: 20181010
  Serious: No
  Sender: FDA-Public Use
  Company Number: US-IGSA-SR10005487

PATIENT
  Age: 58 Year
  Sex: Male
  Weight: 76 kg

DRUGS (14)
  1. ALBUTEROL                          /00139501/ [Concomitant]
     Active Substance: ALBUTEROL
     Dosage: UNK UNK, PRN
  2. SPIRIVA [Concomitant]
     Active Substance: TIOTROPIUM BROMIDE MONOHYDRATE
  3. LANTUS [Concomitant]
     Active Substance: INSULIN GLARGINE
  4. LOVASTATIN. [Concomitant]
     Active Substance: LOVASTATIN
  5. PROLASTIN?C [Suspect]
     Active Substance: .ALPHA.1-PROTEINASE INHIBITOR HUMAN
     Dosage: 4560 MG, Q.WK.
     Route: 042
     Dates: start: 20171113
  6. METOPROLOL. [Concomitant]
     Active Substance: METOPROLOL
  7. GUAIFENESIN. [Concomitant]
     Active Substance: GUAIFENESIN
     Dosage: UNK UNK, PRN
  8. PROLASTIN?C [Suspect]
     Active Substance: .ALPHA.1-PROTEINASE INHIBITOR HUMAN
     Indication: ALPHA-1 ANTI-TRYPSIN DEFICIENCY
     Dosage: 4560 MG, Q.WK.
     Route: 042
     Dates: start: 20171108
  9. PROLASTIN?C [Suspect]
     Active Substance: .ALPHA.1-PROTEINASE INHIBITOR HUMAN
     Dosage: 4560 MG, Q.WK.
     Route: 042
     Dates: start: 20170907
  10. SYMBICORT [Concomitant]
     Active Substance: BUDESONIDE\FORMOTEROL FUMARATE DIHYDRATE
  11. BUMETANIDE. [Concomitant]
     Active Substance: BUMETANIDE
  12. HUMALOG [Concomitant]
     Active Substance: INSULIN LISPRO
  13. ASA [Concomitant]
     Active Substance: ASPIRIN
     Dosage: 81 MG, UNK
  14. GABAPENTIN. [Concomitant]
     Active Substance: GABAPENTIN

REACTIONS (1)
  - Oedema peripheral [Not Recovered/Not Resolved]

NARRATIVE: CASE EVENT DATE: 20171109
